FAERS Safety Report 10676431 (Version 1)
Quarter: 2014Q4

REPORT INFORMATION
  Report Type: Spontaneous
  Country: JP (occurrence: JP)
  Receive Date: 20141226
  Receipt Date: 20141226
  Transmission Date: 20150529
  Serious: Yes (Hospitalization)
  Sender: FDA-Public Use
  Company Number: JP-009507513-1412JPN010472

PATIENT
  Age: 73 Year
  Sex: Female
  Weight: 45 kg

DRUGS (15)
  1. RITUXIMAB [Concomitant]
     Active Substance: RITUXIMAB
     Indication: B-CELL LYMPHOMA
     Dosage: 500 MG, QD, TREATMENT: NOT APPLICABLE
     Route: 041
  2. CYCLOPHOSPHAMIDE. [Concomitant]
     Active Substance: CYCLOPHOSPHAMIDE
     Dosage: 800 MG/KG, UNK
     Route: 042
  3. FLUDARABINE PHOSPHATE. [Concomitant]
     Active Substance: FLUDARABINE PHOSPHATE
     Dosage: 60 MG/M2, UNK, TREATMENT: NOT APPLICABLE
     Route: 048
  4. DEXAMETHASONE. [Suspect]
     Active Substance: DEXAMETHASONE
     Indication: B-CELL LYMPHOMA
     Dosage: 20 MG/M2, QD
     Route: 048
  5. CYTARABINE. [Concomitant]
     Active Substance: CYTARABINE
     Indication: B-CELL LYMPHOMA
     Dosage: DOSE: 1000 MG/M2, QD, TREATMENT: NOT APPLICABLE
     Route: 041
  6. DOXORUBICIN HYDROCHLORIDE. [Concomitant]
     Active Substance: DOXORUBICIN HYDROCHLORIDE
     Indication: B-CELL LYMPHOMA
     Dosage: 70 MG/M2, UNK, TREATMENT: NOT APPLICABLE
     Route: 042
  7. VINCRISTINE SULFATE. [Concomitant]
     Active Substance: VINCRISTINE SULFATE
     Indication: B-CELL LYMPHOMA
     Dosage: 1.9 MG/M2, UNK, TREATMENT: NOT APPLICABLE
     Route: 042
  8. PREDNISOLONE. [Concomitant]
     Active Substance: PREDNISOLONE
     Indication: B-CELL LYMPHOMA
     Dosage: 100 MG, UNK, TREATMENT: NOT APPLICABLE
     Route: 048
  9. ETOPOSIDE. [Concomitant]
     Active Substance: ETOPOSIDE
     Indication: B-CELL LYMPHOMA
     Dosage: 80 MG/M2, UNK, TREATMENT: NOT APPLICABLE
     Route: 041
  10. RITUXIMAB [Concomitant]
     Active Substance: RITUXIMAB
     Dosage: 500 MG, QD, TREATMENT: NOT APPLICABLE
     Route: 041
  11. RITUXIMAB [Concomitant]
     Active Substance: RITUXIMAB
     Dosage: 500 MG, QD, TREATMENT: NOT APPLICABLE
     Route: 041
  12. FLUDARABINE PHOSPHATE. [Concomitant]
     Active Substance: FLUDARABINE PHOSPHATE
     Indication: B-CELL LYMPHOMA
     Dosage: 60 MG/M2, UNK, TREATMENT: NOT APPLICABLE
     Route: 048
  13. CYCLOPHOSPHAMIDE. [Concomitant]
     Active Substance: CYCLOPHOSPHAMIDE
     Indication: B-CELL LYMPHOMA
     Dosage: DOSE: 1000 MG/M2, QD, TREATMENT: NOT APPLICABLE
     Route: 042
  14. RITUXIMAB [Concomitant]
     Active Substance: RITUXIMAB
     Dosage: 500 MG/M2, QD, TREATMENT: NOT APPLICABLE
     Route: 041
  15. RITUXIMAB [Concomitant]
     Active Substance: RITUXIMAB
     Dosage: 500 MG/M2, QD, TREATMENT: NOT APPLICABLE
     Route: 041

REACTIONS (1)
  - Hepatitis B [Recovering/Resolving]

NARRATIVE: CASE EVENT DATE: 20111020
